FAERS Safety Report 11655782 (Version 2)
Quarter: 2015Q4

REPORT INFORMATION
  Report Type: Spontaneous
  Country: US (occurrence: US)
  Receive Date: 20151023
  Receipt Date: 20151214
  Transmission Date: 20160304
  Serious: Yes (Death, Other)
  Sender: FDA-Public Use
  Company Number: US-JNJFOC-20151012502

PATIENT
  Age: 78 Year
  Sex: Male

DRUGS (1)
  1. XARELTO [Suspect]
     Active Substance: RIVAROXABAN
     Indication: ANTICOAGULANT THERAPY
     Route: 048
     Dates: start: 2012, end: 201310

REACTIONS (7)
  - Cardiac failure congestive [Fatal]
  - Internal haemorrhage [Unknown]
  - Intestinal haemorrhage [Unknown]
  - Atrial fibrillation [Fatal]
  - Hypertension [Fatal]
  - Coronary artery disease [Fatal]
  - Rectal haemorrhage [Unknown]

NARRATIVE: CASE EVENT DATE: 201310
